FAERS Safety Report 9532410 (Version 1)
Quarter: 2013Q2

REPORT INFORMATION
  Report Type: Spontaneous
  Country: FR (occurrence: None)
  Receive Date: 20130403
  Receipt Date: 20130403
  Transmission Date: 20140414
  Serious: Yes (Hospitalization)
  Sender: FDA-Public Use
  Company Number: 010327

PATIENT
  Age: 45 Year
  Sex: Male
  Weight: 70 kg

DRUGS (7)
  1. BUSULFEX [Suspect]
     Indication: MYELOID LEUKAEMIA
     Route: 042
     Dates: start: 20100517, end: 20100520
  2. CYCLOPHOSPHAMIDE (CYCLOPHOSPHAMIDE) [Suspect]
     Indication: MYELOID LEUKAEMIA
     Route: 042
     Dates: start: 20100523
  3. ZELITREX (VALACICLOVIR) [Concomitant]
  4. TAZOCILINE (PIPERACILLIN SODIUM, TAZOBACTAM SODIUM) [Concomitant]
  5. FORTUM (CEFTAZIDINE PENTAHYDRATE) [Concomitant]
  6. FLAGYL (METRONIDAZOLE) [Concomitant]
  7. VANCOMYCIN (VANCOMYCIN) [Concomitant]

REACTIONS (2)
  - Viral haemorrhagic cystitis [None]
  - BK virus infection [None]
